FAERS Safety Report 8500378-3 (Version None)
Quarter: 2012Q3

REPORT INFORMATION
  Report Type: 
  Country: None (occurrence: None)
  Receive Date: 20120705
  Receipt Date: 20120705
  Transmission Date: 20120928
  Serious: Yes (Hospitalization)
  Sender: FDA-Public Use
  Company Number: None

PATIENT
  Age: 76 Year
  Sex: Male
  Weight: 74.3899 kg

DRUGS (1)
  1. PROCARDIA XL [Suspect]
     Indication: HYPERTENSION
     Dosage: 30 MG DAILY PO
     Route: 048
     Dates: start: 20120628, end: 20120629

REACTIONS (6)
  - BLINDNESS TRANSIENT [None]
  - PANIC REACTION [None]
  - HYPOTENSION [None]
  - DIZZINESS [None]
  - ASTHENIA [None]
  - RESTLESSNESS [None]
